FAERS Safety Report 7754977-7 (Version None)
Quarter: 2011Q3

REPORT INFORMATION
  Report Type: 
  Country: None (occurrence: None)
  Receive Date: 20110916
  Receipt Date: 20110912
  Transmission Date: 20111222
  Serious: No
  Sender: FDA-Public Use
  Company Number: US-BIOGENIDEC-2011BI035075

PATIENT
  Age: 53 Year
  Sex: Female

DRUGS (2)
  1. RITALIN [Concomitant]
     Indication: MULTIPLE SCLEROSIS
  2. TYSABRI [Suspect]
     Indication: MULTIPLE SCLEROSIS
     Route: 042
     Dates: start: 20090409, end: 20110501

REACTIONS (2)
  - CHEST PAIN [None]
  - MENTAL IMPAIRMENT [None]
